FAERS Safety Report 15279985 (Version 1)
Quarter: 2018Q3

REPORT INFORMATION
  Report Type: Spontaneous
  Country: US (occurrence: US)
  Receive Date: 20180815
  Receipt Date: 20180815
  Transmission Date: 20181010
  Serious: No
  Sender: FDA-Public Use
  Company Number: US-TARO-2017TAR00928

PATIENT
  Age: 80 Year
  Sex: Female
  Weight: 56.24 kg

DRUGS (3)
  1. CLOBETASOL PROPIONATE CREAM USP 0.05% [Suspect]
     Active Substance: CLOBETASOL PROPIONATE
     Indication: PSORIASIS
     Dosage: A SMALL AMOUNT TO ELBOW, 2X/DAY IN THE AM AND AT BED
     Route: 061
     Dates: start: 201710, end: 201710
  2. UNSPECIFIED VITAMINS [Concomitant]
     Active Substance: VITAMINS
  3. METOPROLOL. [Concomitant]
     Active Substance: METOPROLOL
     Dosage: 25 MG, 1X/DAY
     Route: 048

REACTIONS (6)
  - Psoriasis [Recovering/Resolving]
  - Dry skin [Recovering/Resolving]
  - Drug ineffective [Recovered/Resolved]
  - Skin fissures [Recovering/Resolving]
  - Application site erythema [Recovering/Resolving]
  - Skin exfoliation [Recovering/Resolving]

NARRATIVE: CASE EVENT DATE: 201710
